FAERS Safety Report 19188246 (Version 5)
Quarter: 2021Q3

REPORT INFORMATION
  Report Type: Report from Study
  Country: US (occurrence: US)
  Receive Date: 20210427
  Receipt Date: 20210909
  Transmission Date: 20211014
  Serious: Yes (Hospitalization)
  Sender: FDA-Public Use
  Company Number: US-ROCHE-2814303

PATIENT
  Age: 69 Year
  Sex: Female
  Weight: 98.3 kg

DRUGS (28)
  1. POLATUZUMAB VEDOTIN. [Suspect]
     Active Substance: POLATUZUMAB VEDOTIN
     Indication: B-CELL LYMPHOMA
     Dosage: START DATE OF MOST RECENT DOSE OF STUDY DRUG PRIOR TO SAE: 06/APR/2021
     Route: 042
     Dates: start: 20210406
  2. AMITRIPTYLINE [Concomitant]
     Active Substance: AMITRIPTYLINE
     Route: 048
     Dates: start: 2011
  3. ALLOPURINOL. [Concomitant]
     Active Substance: ALLOPURINOL
     Route: 048
     Dates: start: 20210403, end: 20210419
  4. MAGNESIUM SULFATE. [Concomitant]
     Active Substance: MAGNESIUM SULFATE
     Dosage: 16 OTHER
     Route: 042
     Dates: start: 20210416, end: 20210416
  5. CYCLOPHOSPHAMIDE. [Suspect]
     Active Substance: CYCLOPHOSPHAMIDE
     Indication: B-CELL LYMPHOMA
     Dosage: START DATE OF MOST RECENT DOSE OF STUDY DRUG PRIOR TO SAE:06/APR/2021
     Route: 042
     Dates: start: 20210406
  6. CELECOXIB. [Concomitant]
     Active Substance: CELECOXIB
  7. LUTEIN?ZEAXANTHIN [Concomitant]
  8. ONDANSETRON [Concomitant]
     Active Substance: ONDANSETRON
  9. VITAMIN E NOS [Concomitant]
     Active Substance: .ALPHA.-TOCOPHEROL
  10. DOXORUBICIN [Suspect]
     Active Substance: DOXORUBICIN
     Indication: B-CELL LYMPHOMA
     Dosage: START DATE OF MOST RECENT DOSE OF STUDY DRUG PRIOR TO SAE:06/APR/2021
     Route: 042
     Dates: start: 20210406
  11. PREDNISONE. [Suspect]
     Active Substance: PREDNISONE
     Indication: B-CELL LYMPHOMA
     Route: 048
     Dates: start: 20210406
  12. POTASSIUM PHOSPHATE [Concomitant]
     Active Substance: POTASSIUM PHOSPHATE
     Dosage: 30 OTHER
     Route: 042
     Dates: start: 20210415, end: 20210415
  13. POTASSIUM CHLORIDE. [Concomitant]
     Active Substance: POTASSIUM CHLORIDE
     Route: 042
     Dates: start: 20210416, end: 20210418
  14. CYANOCOBALAMIN. [Concomitant]
     Active Substance: CYANOCOBALAMIN
  15. LISINOPRIL. [Concomitant]
     Active Substance: LISINOPRIL
     Route: 048
     Dates: start: 20210415, end: 20210419
  16. ACETAMINOPHEN. [Concomitant]
     Active Substance: ACETAMINOPHEN
  17. DOCUSATE;SENNA [Concomitant]
     Active Substance: DOCUSATE\SENNOSIDES
  18. GADOBUTROL. [Concomitant]
     Active Substance: GADOBUTROL
  19. MOSUNETUZUMAB. [Suspect]
     Active Substance: MOSUNETUZUMAB
     Indication: B-CELL LYMPHOMA
     Dosage: START DATE OF MOST RECENT DOSE OF STUDY DRUG PRIOR TO SAE: 13/APR/2021
     Route: 042
     Dates: start: 20210406
  20. PANTOPRAZOLE [Concomitant]
     Active Substance: PANTOPRAZOLE
     Route: 048
     Dates: start: 20210407
  21. DIPHENHYDRAMINE. [Concomitant]
     Active Substance: DIPHENHYDRAMINE
  22. ASCORBIC ACID. [Concomitant]
     Active Substance: ASCORBIC ACID
  23. FOSINOPRIL [Concomitant]
     Active Substance: FOSINOPRIL
  24. ATORVASTATIN [Concomitant]
     Active Substance: ATORVASTATIN
     Route: 048
     Dates: start: 2011
  25. VALACYCLOVIR [Concomitant]
     Active Substance: VALACYCLOVIR HYDROCHLORIDE
     Route: 048
     Dates: start: 20210407
  26. MEPERIDINE [Concomitant]
     Active Substance: MEPERIDINE
     Route: 042
     Dates: start: 20210406, end: 20210406
  27. PEGFILGRASTIM JMDB [Concomitant]
     Active Substance: PEGFILGRASTIM-JMDB
  28. CHOLECALCIFEROL [Concomitant]
     Active Substance: CHOLECALCIFEROL

REACTIONS (1)
  - Febrile neutropenia [Recovered/Resolved]

NARRATIVE: CASE EVENT DATE: 20210415
